FAERS Safety Report 6318450-5 (Version None)
Quarter: 2009Q3

REPORT INFORMATION
  Report Type: 
  Country: None (occurrence: None)
  Receive Date: 20090821
  Receipt Date: 20090814
  Transmission Date: 20100115
  Serious: Yes (Other)
  Sender: FDA-Public Use
  Company Number: US-BAYER-200927185NA

PATIENT
  Age: 59 Year
  Sex: Female
  Weight: 58 kg

DRUGS (5)
  1. AVELOX [Suspect]
     Indication: BRONCHITIS
     Dosage: TOTAL DAILY DOSE: 400 MG  UNIT DOSE: 400 MG
     Dates: start: 20090320, end: 20090326
  2. ZETIA [Concomitant]
  3. OMEPRAZOLE [Concomitant]
  4. MELOXICAM [Concomitant]
  5. HERBAL SUPPLEMENTS [Concomitant]

REACTIONS (3)
  - PAIN [None]
  - SWELLING [None]
  - TENDON RUPTURE [None]
